FAERS Safety Report 21820188 (Version 1)
Quarter: 2023Q1

REPORT INFORMATION
  Report Type: Spontaneous
  Country: AT (occurrence: AT)
  Receive Date: 20230105
  Receipt Date: 20230105
  Transmission Date: 20230418
  Serious: Yes (Other)
  Sender: FDA-Public Use
  Company Number: AT-SUN PHARMACEUTICAL INDUSTRIES LTD-2022RR-371577

PATIENT
  Age: 64 Year
  Sex: Male

DRUGS (5)
  1. TRABECTEDIN [Suspect]
     Active Substance: TRABECTEDIN
     Indication: Leiomyosarcoma
     Dosage: 1.5 MILLIGRAM/SQ. METER ON 1 OF EVERY 21-DAY CYCLE FOR THE FIRST 19 CYCLES
     Route: 065
     Dates: start: 201406
  2. TRABECTEDIN [Suspect]
     Active Substance: TRABECTEDIN
     Dosage: 1.2 MILLIGRAM/SQ. METER FOR THE LAST FIVE CYCLES
     Route: 065
  3. GEMCITABINE [Suspect]
     Active Substance: GEMCITABINE
     Indication: Leiomyosarcoma
     Dosage: 1250 MILLIGRAM/SQ. METER ON DAYS 1 AND 8 IN A 21-DAY SCHEDULE
     Route: 065
     Dates: start: 201704
  4. DOCETAXEL [Suspect]
     Active Substance: DOCETAXEL
     Indication: Leiomyosarcoma
     Dosage: UNK
     Route: 065
  5. PAZOPANIB [Suspect]
     Active Substance: PAZOPANIB
     Indication: Leiomyosarcoma
     Dosage: 800 MILLIGRAM, DAILY
     Route: 065
     Dates: start: 201602

REACTIONS (4)
  - Disease progression [Unknown]
  - Fatigue [Unknown]
  - Metastases to lung [Unknown]
  - Metastases to liver [Unknown]
